FAERS Safety Report 5370825-7 (Version None)
Quarter: 2007Q2

REPORT INFORMATION
  Report Type: 
  Country: None (occurrence: None)
  Receive Date: 20070618
  Receipt Date: 20070123
  Transmission Date: 20071010
  Serious: Yes (Life-Threatening, Hospitalization)
  Sender: FDA-Public Use
  Company Number: PHEH2006US15195

PATIENT
  Age: 66 Year
  Sex: Male

DRUGS (4)
  1. GLEEVEC [Suspect]
     Indication: CHRONIC MYELOID LEUKAEMIA
     Dosage: 400 MG, 5 TIMES DAILY, ORAL; 100 MG, QD, ORAL; 200 MG, QD, ORAL; 300 MG, QD, ORAL
     Route: 048
     Dates: start: 20061128, end: 20061206
  2. GLEEVEC [Suspect]
     Indication: CHRONIC MYELOID LEUKAEMIA
     Dosage: 400 MG, 5 TIMES DAILY, ORAL; 100 MG, QD, ORAL; 200 MG, QD, ORAL; 300 MG, QD, ORAL
     Route: 048
     Dates: start: 20061222, end: 20070107
  3. GLEEVEC [Suspect]
     Indication: CHRONIC MYELOID LEUKAEMIA
     Dosage: 400 MG, 5 TIMES DAILY, ORAL; 100 MG, QD, ORAL; 200 MG, QD, ORAL; 300 MG, QD, ORAL
     Route: 048
     Dates: start: 20070108, end: 20070114
  4. GLEEVEC [Suspect]
     Indication: CHRONIC MYELOID LEUKAEMIA
     Dosage: 400 MG, 5 TIMES DAILY, ORAL; 100 MG, QD, ORAL; 200 MG, QD, ORAL; 300 MG, QD, ORAL
     Route: 048
     Dates: start: 20070115

REACTIONS (5)
  - AGRANULOCYTOSIS [None]
  - HEART RATE INCREASED [None]
  - HERPES DERMATITIS [None]
  - PANCYTOPENIA [None]
  - RESPIRATORY RATE INCREASED [None]
